FAERS Safety Report 5621857-2 (Version None)
Quarter: 2008Q1

REPORT INFORMATION
  Report Type: 
  Country: None (occurrence: None)
  Receive Date: 20080211
  Receipt Date: 20071119
  Transmission Date: 20080703
  Serious: Yes (Hospitalization)
  Sender: FDA-Public Use
  Company Number: US-BRISTOL-MYERS SQUIBB COMPANY-13983705

PATIENT
  Age: 30 Year
  Sex: Female

DRUGS (3)
  1. IXEMPRA [Suspect]
     Dates: start: 20071109, end: 20071109
  2. CAPECITABINE [Suspect]
     Dates: start: 20071109, end: 20071109
  3. DECADRON [Concomitant]

REACTIONS (1)
  - PANCYTOPENIA [None]
